FAERS Safety Report 17052859 (Version 1)
Quarter: 2019Q4

REPORT INFORMATION
  Report Type: Spontaneous
  Country: US (occurrence: US)
  Receive Date: 20191021
  Receipt Date: 20191021
  Transmission Date: 20200122
  Serious: Yes (Hospitalization)
  Sender: FDA-Public Use
  Company Number: None

PATIENT
  Age: 69 Year
  Sex: Male
  Weight: 81.92 kg

DRUGS (2)
  1. SACUBITRIL/VALSARTAN [Suspect]
     Active Substance: SACUBITRIL\VALSARTAN
     Indication: ACUTE KIDNEY INJURY
  2. SACUBITRIL/VALSARTAN [Suspect]
     Active Substance: SACUBITRIL\VALSARTAN
     Indication: HYPOTENSION
     Dosage: ?          OTHER DOSE:1/2 TABLET;?
     Route: 048
     Dates: start: 20190805, end: 20190805

REACTIONS (4)
  - Asthenia [None]
  - Acute kidney injury [None]
  - Oliguria [None]
  - Hypotension [None]

NARRATIVE: CASE EVENT DATE: 20190805
